FAERS Safety Report 21148484 (Version 1)
Quarter: 2022Q3

REPORT INFORMATION
  Report Type: Spontaneous
  Country: US (occurrence: US)
  Receive Date: 20220729
  Receipt Date: 20220729
  Transmission Date: 20221027
  Serious: Yes (Death, Other)
  Sender: FDA-Public Use
  Company Number: US-BRISTOL-MYERS SQUIBB COMPANY-2022-081088

PATIENT
  Age: 71 Year
  Sex: Female

DRUGS (1)
  1. REVLIMID [Suspect]
     Active Substance: LENALIDOMIDE
     Indication: Plasma cell myeloma
     Dosage: TAKE 1 CAPSULE (25 MG) BY MOUTH DAILY FOR 21 DOSES ON DAYS 1-21 OF EACH 28-DAY TREATMENT CYCLE
     Route: 048
     Dates: start: 20220628

REACTIONS (2)
  - Malignant neoplasm progression [Fatal]
  - Infection [Fatal]

NARRATIVE: CASE EVENT DATE: 20220101
